FAERS Safety Report 6371195-8 (Version None)
Quarter: 2009Q3

REPORT INFORMATION
  Report Type: 
  Country: None (occurrence: None)
  Receive Date: 20090923
  Receipt Date: 20071204
  Transmission Date: 20100115
  Serious: No
  Sender: FDA-Public Use
  Company Number: US-ASTRAZENECA-2007UW02170

PATIENT
  Age: 12586 Day
  Sex: Female
  Weight: 64.4 kg

DRUGS (14)
  1. SEROQUEL [Suspect]
     Indication: BIPOLAR DISORDER
     Route: 048
     Dates: start: 19990119
  2. SEROQUEL [Suspect]
     Dosage: 25-300 MG
     Route: 048
     Dates: start: 20010620, end: 20040401
  3. ABILIFY [Concomitant]
     Dates: start: 20040101
  4. GEODON [Concomitant]
     Dates: start: 20030101
  5. HALDOL [Concomitant]
     Dates: start: 20010101
  6. RISPERDAL [Concomitant]
     Dates: start: 19990101, end: 20020101
  7. THORAZINE [Concomitant]
     Dates: start: 20040101
  8. ZYPREXA [Concomitant]
     Dosage: 5-20 MG
     Dates: start: 20000101, end: 20030101
  9. ZYPREXA [Concomitant]
     Dosage: 10 MG 2002
  10. ZYPREXA [Concomitant]
     Dosage: 10-20 MG 2003
  11. CELEXA [Concomitant]
     Dates: start: 20000101, end: 20010101
  12. CELEXA [Concomitant]
     Dates: start: 20010101, end: 20030101
  13. TOPAMAX [Concomitant]
     Dates: start: 20020101, end: 20030101
  14. TRAZODONE [Concomitant]
     Dates: start: 20020101

REACTIONS (8)
  - BACK PAIN [None]
  - BLOOD CHOLESTEROL INCREASED [None]
  - BRONCHITIS [None]
  - COUGH [None]
  - NECK PAIN [None]
  - SINUSITIS [None]
  - TYPE 2 DIABETES MELLITUS [None]
  - UPPER RESPIRATORY TRACT INFECTION [None]
